FAERS Safety Report 5145178-X (Version None)
Quarter: 2006Q4

REPORT INFORMATION
  Report Type: 
  Country: None (occurrence: None)
  Receive Date: 20061107
  Receipt Date: 20060918
  Transmission Date: 20070319
  Serious: Yes (Other)
  Sender: FDA-Public Use
  Company Number: GB-ROCHE-464163

PATIENT
  Age: 50 Year
  Sex: Female
  Weight: 93 kg

DRUGS (15)
  1. XENICAL [Suspect]
     Indication: OBESITY
     Route: 048
     Dates: start: 20060517, end: 20060922
  2. ALGESAL [Concomitant]
  3. ATORVASTATIN CALCIUM [Concomitant]
  4. BECLOMETHASONE DIPROPIONATE [Concomitant]
  5. CETIRIZINE HCL [Concomitant]
  6. FERROUS FUMARATE [Concomitant]
  7. LOSARTAN POSTASSIUM [Concomitant]
  8. NORIDAY [Concomitant]
  9. OMEPRAZOLE [Concomitant]
  10. OXERUTINS [Concomitant]
  11. PAROXETINE HCL [Concomitant]
  12. POLYTAR [Concomitant]
  13. SERETIDE [Concomitant]
  14. TERBUTALINE [Concomitant]
  15. TRAMACET [Concomitant]

REACTIONS (3)
  - DIARRHOEA [None]
  - HAEMATOCHEZIA [None]
  - THROMBOSIS [None]
